FAERS Safety Report 7987724-4 (Version None)
Quarter: 2011Q4

REPORT INFORMATION
  Report Type: 
  Country: None (occurrence: None)
  Receive Date: 20111216
  Receipt Date: 20110502
  Transmission Date: 20120403
  Serious: No
  Sender: FDA-Public Use
  Company Number: US-BRISTOL-MYERS SQUIBB COMPANY-15710833

PATIENT
  Sex: Female

DRUGS (3)
  1. SEROQUEL [Concomitant]
  2. ABILIFY [Suspect]
     Indication: BIPOLAR DISORDER
     Dosage: TITRATED FROM 2 MG TO 5 MG OVER
  3. TEGRETOL [Concomitant]

REACTIONS (1)
  - FEELING JITTERY [None]
